FAERS Safety Report 8240813-1 (Version None)
Quarter: 2012Q1

REPORT INFORMATION
  Report Type: 
  Country: None (occurrence: None)
  Receive Date: 20120328
  Receipt Date: 20120320
  Transmission Date: 20120608
  Serious: Yes (Hospitalization)
  Sender: FDA-Public Use
  Company Number: PHHY2012FR024960

PATIENT
  Sex: Male

DRUGS (3)
  1. CLOZAPINE [Suspect]
     Indication: SCHIZOPHRENIA
     Dosage: 800 MG, PER DAY
  2. CLOZAPINE [Suspect]
     Dosage: 500 MG, PER DAY
     Dates: start: 20111010
  3. ABILIFY [Suspect]
     Dosage: 5 MG, PER DAY
     Route: 048
     Dates: start: 20111215, end: 20120102

REACTIONS (2)
  - CONSTIPATION [None]
  - FAECAL VOMITING [None]
